FAERS Safety Report 19041489 (Version 3)
Quarter: 2023Q1

REPORT INFORMATION
  Report Type: Spontaneous
  Country: US (occurrence: US)
  Receive Date: 20210322
  Receipt Date: 20230309
  Transmission Date: 20230418
  Serious: No
  Sender: FDA-Public Use
  Company Number: US-THERATECHNOLOGIES INC.-2021-THE-IBA-000084

PATIENT

DRUGS (2)
  1. TROGARZO [Suspect]
     Active Substance: IBALIZUMAB-UIYK
     Indication: Product used for unknown indication
     Dosage: UNK
     Route: 042
     Dates: start: 2021
  2. TROGARZO [Suspect]
     Active Substance: IBALIZUMAB-UIYK
     Dosage: FIRST IVP
     Route: 042
     Dates: start: 20221011, end: 20221025

REACTIONS (9)
  - Mood altered [Unknown]
  - Influenza [Unknown]
  - Pain [Recovering/Resolving]
  - Weight decreased [Unknown]
  - Pyrexia [Unknown]
  - Viral load increased [Recovered/Resolved]
  - Diarrhoea [Unknown]
  - Vomiting [Unknown]
  - Nausea [Unknown]
